FAERS Safety Report 25861452 (Version 7)
Quarter: 2025Q4

REPORT INFORMATION
  Report Type: Report from Study
  Country: JP (occurrence: JP)
  Receive Date: 20250929
  Receipt Date: 20251223
  Transmission Date: 20260117
  Serious: Yes (Hospitalization, Other)
  Sender: ABBVIE
  Company Number: JP-ABBVIE-6478651

PATIENT
  Age: 47 Year
  Sex: Male
  Weight: 54.7 kg

DRUGS (4)
  1. RISANKIZUMAB [Suspect]
     Active Substance: RISANKIZUMAB
     Indication: Crohn^s disease
     Route: 042
     Dates: start: 20240801
  2. ELENTAL COMBINATION POWDER [Concomitant]
     Indication: Crohn^s disease
     Route: 048
     Dates: start: 20240730, end: 20251105
  3. HYDROCORTISONE [Concomitant]
     Active Substance: HYDROCORTISONE
     Indication: Crohn^s disease
     Dosage: TIME INTERVAL: AS NECESSARY
     Route: 003
     Dates: start: 20240804
  4. BROTIZOLAM [Concomitant]
     Active Substance: BROTIZOLAM
     Indication: Insomnia
     Route: 048
     Dates: start: 20240724

REACTIONS (1)
  - Malignant anorectal neoplasm [Not Recovered/Not Resolved]

NARRATIVE: CASE EVENT DATE: 20250925
